FAERS Safety Report 6962077-9 (Version None)
Quarter: 2010Q3

REPORT INFORMATION
  Report Type: 
  Country: None (occurrence: None)
  Receive Date: 20100902
  Receipt Date: 20100823
  Transmission Date: 20110219
  Serious: Yes (Other)
  Sender: FDA-Public Use
  Company Number: US-JNJFOC-20100702282

PATIENT
  Sex: Female
  Weight: 71.67 kg

DRUGS (9)
  1. SIMPONI [Suspect]
     Indication: RHEUMATOID ARTHRITIS
     Route: 058
  2. METHOTREXATE [Concomitant]
     Indication: RHEUMATOID ARTHRITIS
  3. ARTHROTEC [Concomitant]
     Indication: RHEUMATOID ARTHRITIS
  4. PROCARDIA XL [Concomitant]
     Indication: RAYNAUD'S PHENOMENON
  5. ALLEGRA [Concomitant]
     Indication: MULTIPLE ALLERGIES
  6. FLONASE [Concomitant]
  7. NUCYNTA [Concomitant]
  8. CYMBALTA [Concomitant]
  9. FOLIC ACID [Concomitant]

REACTIONS (2)
  - BRONCHITIS [None]
  - THERAPEUTIC RESPONSE DECREASED [None]
